FAERS Safety Report 13506098 (Version 1)
Quarter: 2017Q2

REPORT INFORMATION
  Report Type: Spontaneous
  Country: US (occurrence: US)
  Receive Date: 20170502
  Receipt Date: 20170502
  Transmission Date: 20170830
  Serious: Yes (Death)
  Sender: FDA-Public Use
  Company Number: US-ROCHE-1475720

PATIENT
  Age: 68 Year
  Sex: Male
  Weight: 80.36 kg

DRUGS (7)
  1. WARFARIN [Suspect]
     Active Substance: WARFARIN
     Indication: ATRIAL FIBRILLATION
     Dosage: DOSE : 2.5/5 MG DAILY
     Route: 048
     Dates: end: 20140909
  2. ASPIRIN. [Suspect]
     Active Substance: ASPIRIN
     Indication: TRANSIENT ISCHAEMIC ATTACK
     Route: 048
     Dates: end: 20140909
  3. CARBOPLATIN. [Concomitant]
     Active Substance: CARBOPLATIN
     Indication: NON-SMALL CELL LUNG CANCER
     Dosage: ONLY DOSE
     Route: 042
     Dates: start: 20140827
  4. TAXOL [Concomitant]
     Active Substance: PACLITAXEL
     Indication: NON-SMALL CELL LUNG CANCER
     Dosage: ONLY DOSE
     Route: 042
     Dates: start: 20140827
  5. AVASTIN [Suspect]
     Active Substance: BEVACIZUMAB
     Indication: LUNG CARCINOMA CELL TYPE UNSPECIFIED STAGE IV
     Dosage: ONLY DOSE
     Route: 042
     Dates: start: 20140827, end: 20140827
  6. AVASTIN [Suspect]
     Active Substance: BEVACIZUMAB
     Indication: NON-SMALL CELL LUNG CANCER
  7. COUMADIN [Concomitant]
     Active Substance: WARFARIN SODIUM
     Indication: ATRIAL FIBRILLATION
     Dosage: 2.5 / 5 MG DAILY
     Route: 048

REACTIONS (3)
  - Pulmonary haemorrhage [Fatal]
  - Haemoptysis [Fatal]
  - Epistaxis [Fatal]

NARRATIVE: CASE EVENT DATE: 20140909
